FAERS Safety Report 23383190 (Version 3)
Quarter: 2024Q1

REPORT INFORMATION
  Report Type: Report from Study
  Country: US (occurrence: US)
  Receive Date: 20240109
  Receipt Date: 20240314
  Transmission Date: 20240410
  Serious: Yes (Other)
  Sender: FDA-Public Use
  Company Number: US-TAKEDA-2023TUS038756

PATIENT
  Sex: Female

DRUGS (4)
  1. MARIBAVIR [Suspect]
     Active Substance: MARIBAVIR
     Indication: Cytomegalovirus infection
     Dosage: 400 MILLIGRAM, BID
     Route: 048
     Dates: start: 20230413
  2. MARIBAVIR [Suspect]
     Active Substance: MARIBAVIR
     Indication: Post procedural infection
     Dosage: 400 MILLIGRAM, BID
     Route: 048
  3. MARIBAVIR [Suspect]
     Active Substance: MARIBAVIR
     Dosage: 2 DOSAGE FORM, BID
     Route: 048
  4. MARIBAVIR [Suspect]
     Active Substance: MARIBAVIR
     Dosage: 400 MILLIGRAM, BID
     Route: 048
     Dates: start: 20230612

REACTIONS (12)
  - Cytomegalovirus infection reactivation [Unknown]
  - Illness [Unknown]
  - Abdominal discomfort [Unknown]
  - Decreased immune responsiveness [Not Recovered/Not Resolved]
  - Drug ineffective [Unknown]
  - Asthenia [Unknown]
  - Fatigue [Unknown]
  - Dysgeusia [Unknown]
  - Taste disorder [Recovering/Resolving]
  - Diarrhoea [Unknown]
  - Nausea [Unknown]
  - Product dose omission issue [Unknown]
